FAERS Safety Report 8758075 (Version 2)
Quarter: 2012Q4

REPORT INFORMATION
  Report Type: Spontaneous
  Country: GB (occurrence: None)
  Receive Date: 20120814
  Receipt Date: 20120905
  Transmission Date: 20130627
  Serious: Yes (Hospitalization)
  Sender: FDA-Public Use
  Company Number: 2012CP000095

PATIENT
  Sex: Female

DRUGS (1)
  1. PERFALGAN [Suspect]
     Indication: PAIN
     Route: 042

REACTIONS (4)
  - Wound sepsis [None]
  - Wound dehiscence [None]
  - Fluid retention [None]
  - Breast necrosis [None]
